FAERS Safety Report 4577708-0 (Version None)
Quarter: 2005Q1

REPORT INFORMATION
  Report Type: 
  Country: None (occurrence: None)
  Receive Date: 20050127
  Receipt Date: 20040826
  Transmission Date: 20050727
  Serious: No
  Sender: FDA-Public Use
  Company Number: USA040876596

PATIENT
  Age: 7 Year
  Sex: Female
  Weight: 29 kg

DRUGS (1)
  1. STRATTERA [Suspect]
     Dosage: 50 MG/L DAY
     Dates: start: 20040201

REACTIONS (4)
  - AGGRESSION [None]
  - DRUG EFFECT DECREASED [None]
  - PRESCRIBED OVERDOSE [None]
  - PSYCHOMOTOR HYPERACTIVITY [None]
